FAERS Safety Report 9301239 (Version 1)
Quarter: 2013Q2

REPORT INFORMATION
  Report Type: Spontaneous
  Country: US (occurrence: None)
  Receive Date: 20130520
  Receipt Date: 20130520
  Transmission Date: 20140414
  Serious: No
  Sender: FDA-Public Use
  Company Number: None

PATIENT
  Age: 69 Year
  Sex: Male
  Weight: 67.5 kg

DRUGS (2)
  1. FLUOROURACIL [Suspect]
     Indication: COLON CANCER
     Dosage: 4272 MG, ONE TIME INFUSION, IV
     Route: 042
     Dates: start: 20130514, end: 20130515
  2. INFUSOR SV ML/HR BAXTER [Suspect]
     Dosage: 92 ML TOTAL VOLUME ONE TIME INFUSION IV
     Dates: start: 20130514, end: 20130515

REACTIONS (1)
  - Injection site extravasation [None]
